FAERS Safety Report 8565096-4 (Version None)
Quarter: 2012Q3

REPORT INFORMATION
  Report Type: 
  Country: None (occurrence: None)
  Receive Date: 20120723
  Receipt Date: 20120718
  Transmission Date: 20120928
  Serious: Yes (Other)
  Sender: FDA-Public Use
  Company Number: US-1187242

PATIENT

DRUGS (4)
  1. BSS [Suspect]
     Route: 031
  2. BSS [Suspect]
     Indication: CATARACT OPERATION
     Dosage: SEE IMAGE
     Route: 031
     Dates: start: 20110713, end: 20110713
  3. BSS [Suspect]
  4. BSS [Suspect]

REACTIONS (3)
  - EYE INFLAMMATION [None]
  - EYE OPERATION COMPLICATION [None]
  - TOXIC ANTERIOR SEGMENT SYNDROME [None]
